FAERS Safety Report 4537202-X (Version None)
Quarter: 2004Q4

REPORT INFORMATION
  Report Type: 
  Country: None (occurrence: None)
  Receive Date: 20041223
  Receipt Date: 20041220
  Transmission Date: 20050328
  Serious: Yes (Other)
  Sender: FDA-Public Use
  Company Number: PHEH2004US13477

PATIENT
  Age: 76 Year
  Sex: Female

DRUGS (8)
  1. TOPROL-XL [Concomitant]
  2. LOTENSIN [Suspect]
     Dosage: 20 MG, QD
     Route: 048
     Dates: end: 20041201
  3. LOTENSIN [Suspect]
     Dosage: 20 MG, BID
     Route: 048
     Dates: start: 20041201
  4. PLAVIX [Concomitant]
  5. ACIPHEX [Concomitant]
  6. PRAVACHOL [Concomitant]
  7. LORAZEPAM [Concomitant]
  8. ZELNORM [Suspect]
     Indication: CONSTIPATION
     Dosage: 6 MG, QD
     Dates: start: 20041101

REACTIONS (1)
  - BLOOD PRESSURE INCREASED [None]
